FAERS Safety Report 19506009 (Version 1)
Quarter: 2021Q3

REPORT INFORMATION
  Report Type: Spontaneous
  Country: US (occurrence: US)
  Receive Date: 20210707
  Receipt Date: 20210707
  Transmission Date: 20211014
  Serious: No
  Sender: FDA-Public Use
  Company Number: None

PATIENT
  Age: 68 Year
  Sex: Female
  Weight: 112.94 kg

DRUGS (9)
  1. VITAMIN C [Concomitant]
     Active Substance: ASCORBIC ACID
  2. NAPROXEN. [Concomitant]
     Active Substance: NAPROXEN
  3. VIT B [Concomitant]
     Active Substance: VITAMIN B
  4. L?THYROXINE [Concomitant]
     Active Substance: LEVOTHYROXINE
  5. ASPIRIN. [Concomitant]
     Active Substance: ASPIRIN
  6. MULTI VITAMIN [Concomitant]
     Active Substance: VITAMINS
  7. CLONAZEPAN [Concomitant]
     Active Substance: CLONAZEPAM
  8. ATORVASTATIN TABS 10MG GENERIC FOR LIPITOR TABS [Suspect]
     Active Substance: ATORVASTATIN
     Indication: BLOOD CHOLESTEROL INCREASED
     Dosage: ?          QUANTITY:1 DF DOSAGE FORM;?
     Route: 048
     Dates: end: 20210504
  9. FLUOXETINE [Concomitant]
     Active Substance: FLUOXETINE HYDROCHLORIDE

REACTIONS (7)
  - Dysstasia [None]
  - Pain in extremity [None]
  - Fatigue [None]
  - Respiratory disorder [None]
  - Hypoaesthesia [None]
  - Insomnia [None]
  - Fall [None]

NARRATIVE: CASE EVENT DATE: 2020
